FAERS Safety Report 20637913 (Version 1)
Quarter: 2022Q1

REPORT INFORMATION
  Report Type: Spontaneous
  Country: RO (occurrence: None)
  Receive Date: 20220325
  Receipt Date: 20220325
  Transmission Date: 20220424
  Serious: Yes (Other)
  Sender: FDA-Public Use
  Company Number: 2022A119324

PATIENT
  Sex: Female
  Weight: 81 kg

DRUGS (5)
  1. LYNPARZA [Suspect]
     Active Substance: OLAPARIB
     Indication: Triple negative breast cancer
     Route: 048
     Dates: start: 20220110
  2. LYNPARZA [Suspect]
     Active Substance: OLAPARIB
     Indication: Triple negative breast cancer
     Dosage: REDUCED
     Route: 048
  3. SORBIFER DURULES [Concomitant]
     Dosage: 100 MG PLUS 60 MG
  4. ZEMPLAR [Concomitant]
     Active Substance: PARICALCITOL
  5. ARANESP [Concomitant]
     Active Substance: DARBEPOETIN ALFA
     Dosage: 30MCG/0.3ML

REACTIONS (1)
  - Renal impairment [Recovering/Resolving]
